FAERS Safety Report 4435267-7 (Version None)
Quarter: 2004Q3

REPORT INFORMATION
  Report Type: 
  Country: None (occurrence: None)
  Receive Date: 20040826
  Receipt Date: 20040701
  Transmission Date: 20050211
  Serious: Yes (Hospitalization)
  Sender: FDA-Public Use
  Company Number: 8353

PATIENT
  Age: 60 Year
  Sex: Male

DRUGS (2)
  1. LEUCOVORIN CALCIUM [Suspect]
     Indication: RECTAL CANCER
     Dosage: 500 MG/M2, IV
     Route: 042
     Dates: start: 20040301
  2. OXALIPLATIN [Concomitant]

REACTIONS (3)
  - ANAPHYLACTIC REACTION [None]
  - ANGINA PECTORIS [None]
  - HYPERSENSITIVITY [None]
